FAERS Safety Report 15401851 (Version 1)
Quarter: 2018Q3

REPORT INFORMATION
  Report Type: Spontaneous
  Country: US (occurrence: US)
  Receive Date: 20180912
  Receipt Date: 20180912
  Transmission Date: 20181010
  Serious: No
  Sender: FDA-Public Use
  Company Number: None

PATIENT
  Age: 50 Year
  Sex: Female

DRUGS (1)
  1. COPAXONE [Suspect]
     Active Substance: GLATIRAMER ACETATE
     Dosage: OTHER
     Route: 058
     Dates: start: 201710

REACTIONS (5)
  - Injection site reaction [None]
  - Injection site pain [None]
  - Injection site warmth [None]
  - Injection site erythema [None]
  - Pyrexia [None]

NARRATIVE: CASE EVENT DATE: 20180911
